FAERS Safety Report 6871943-4 (Version None)
Quarter: 2010Q3

REPORT INFORMATION
  Report Type: 
  Country: None (occurrence: None)
  Receive Date: 20100723
  Receipt Date: 20100716
  Transmission Date: 20110219
  Serious: Yes (Other)
  Sender: FDA-Public Use
  Company Number: CA-AMGEN-QUU426138

PATIENT
  Sex: Female

DRUGS (7)
  1. NPLATE [Suspect]
     Indication: IDIOPATHIC THROMBOCYTOPENIC PURPURA
     Route: 058
     Dates: start: 20100427
  2. TEGRETOL [Concomitant]
     Route: 048
  3. ARTHROTEC [Concomitant]
     Route: 048
  4. PANTOPRAZOLE [Concomitant]
     Route: 048
  5. EFFEXOR [Concomitant]
     Route: 048
  6. METFORMIN HCL [Concomitant]
     Route: 048
  7. OXYCONTIN [Concomitant]
     Route: 048

REACTIONS (4)
  - AORTIC OCCLUSION [None]
  - HEADACHE [None]
  - MYALGIA [None]
  - PAIN [None]
